FAERS Safety Report 19620331 (Version 1)
Quarter: 2021Q3

REPORT INFORMATION
  Report Type: Spontaneous
  Country: US (occurrence: US)
  Receive Date: 20210727
  Receipt Date: 20210727
  Transmission Date: 20211014
  Serious: Yes (Hospitalization, Disabling)
  Sender: FDA-Public Use
  Company Number: None

PATIENT
  Age: 24 Year
  Sex: Female
  Weight: 58.5 kg

DRUGS (3)
  1. CITALOPRAM [Suspect]
     Active Substance: CITALOPRAM HYDROBROMIDE
     Indication: DEPRESSION
     Dates: start: 20190817, end: 20200701
  2. LEXAPRO [Suspect]
     Active Substance: ESCITALOPRAM OXALATE
  3. KLONOPIN [Suspect]
     Active Substance: CLONAZEPAM

REACTIONS (5)
  - Sexual dysfunction [None]
  - Suicidal ideation [None]
  - Mood swings [None]
  - Memory impairment [None]
  - Depression [None]

NARRATIVE: CASE EVENT DATE: 20190817
